FAERS Safety Report 8818752 (Version 2)
Quarter: 2014Q3

REPORT INFORMATION
  Report Type: Report from Study
  Country: US (occurrence: US)
  Receive Date: 20121001
  Receipt Date: 20140905
  Transmission Date: 20150326
  Serious: Yes (Other)
  Sender: FDA-Public Use
  Company Number: US-ROCHE-1131253

PATIENT
  Age: 81 Year
  Sex: Female

DRUGS (11)
  1. NEURONTIN (UNITED STATES) [Concomitant]
  2. HERCEPTIN [Suspect]
     Active Substance: TRASTUZUMAB
     Indication: BREAST CANCER
  3. HERCEPTIN [Suspect]
     Active Substance: TRASTUZUMAB
     Indication: BREAST CANCER FEMALE
  4. CARDIZEM [Concomitant]
     Active Substance: DILTIAZEM HYDROCHLORIDE
  5. HERCEPTIN [Suspect]
     Active Substance: TRASTUZUMAB
     Indication: BREAST CANCER METASTATIC
     Route: 042
     Dates: start: 20000501
  6. ADRIAMYCIN [Concomitant]
     Active Substance: DOXORUBICIN HYDROCHLORIDE
  7. VICODIN [Concomitant]
     Active Substance: ACETAMINOPHEN\HYDROCODONE BITARTRATE
  8. HERCEPTIN [Suspect]
     Active Substance: TRASTUZUMAB
     Indication: METASTASES TO LIVER
     Dosage: MAINTAINANCE DOSE
     Route: 042
  9. COUMADIN [Concomitant]
     Active Substance: WARFARIN SODIUM
     Dosage: DOSE REDUCED
     Route: 065
  10. HERCEPTIN [Suspect]
     Active Substance: TRASTUZUMAB
     Indication: MALIGNANT NIPPLE NEOPLASM
  11. COUMADIN [Concomitant]
     Active Substance: WARFARIN SODIUM
     Dosage: UNKNOWN
     Route: 065

REACTIONS (9)
  - Urinary incontinence [Unknown]
  - Dry skin [Unknown]
  - Hot flush [Unknown]
  - Herpes zoster [Unknown]
  - Oedema peripheral [Unknown]
  - Asthenia [Unknown]
  - Somnolence [Unknown]
  - Dizziness [Unknown]
  - Cough [Unknown]

NARRATIVE: CASE EVENT DATE: 20010703
